FAERS Safety Report 7795836-3 (Version None)
Quarter: 2011Q4

REPORT INFORMATION
  Report Type: 
  Country: None (occurrence: None)
  Receive Date: 20111004
  Receipt Date: 20110924
  Transmission Date: 20120403
  Serious: Yes (Other)
  Sender: FDA-Public Use
  Company Number: PHHY2011US85763

PATIENT
  Age: 52 Year
  Sex: Male

DRUGS (1)
  1. CLOZAPINE [Suspect]

REACTIONS (11)
  - BODY TEMPERATURE INCREASED [None]
  - CEREBRAL ISCHAEMIA [None]
  - AGGRESSION [None]
  - COGNITIVE DISORDER [None]
  - DRUG INEFFECTIVE [None]
  - AGITATION [None]
  - TACHYCARDIA [None]
  - HYPOTENSION [None]
  - ECHOPRAXIA [None]
  - ENCEPHALITIS [None]
  - ABNORMAL BEHAVIOUR [None]
